FAERS Safety Report 5114451-3 (Version None)
Quarter: 2006Q3

REPORT INFORMATION
  Report Type: 
  Country: None (occurrence: None)
  Receive Date: 20060731
  Receipt Date: 20060826
  Transmission Date: 20061208
  Serious: No
  Sender: FDA-Public Use
  Company Number: 2006PV014634

PATIENT
  Age: 73 Year
  Sex: Male
  Weight: 111.5849 kg

DRUGS (5)
  1. BYETTA [Suspect]
     Indication: DIABETES MELLITUS NON-INSULIN-DEPENDENT
     Dosage: 5 MCG; BID; SC
     Route: 058
     Dates: start: 20060508
  2. PRILOSEC [Concomitant]
  3. HUMULIN 70/30 [Concomitant]
  4. GLYBURIDE [Concomitant]
  5. GLYBURIDE [Concomitant]

REACTIONS (3)
  - DYSGEUSIA [None]
  - DYSPEPSIA [None]
  - WEIGHT DECREASED [None]
